FAERS Safety Report 6004107-7 (Version None)
Quarter: 2008Q4

REPORT INFORMATION
  Report Type: 
  Country: None (occurrence: None)
  Receive Date: 20081215
  Receipt Date: 20081215
  Transmission Date: 20090506
  Serious: No
  Sender: FDA-Public Use
  Company Number: None

PATIENT
  Age: 49 Year
  Sex: Male
  Weight: 83.9154 kg

DRUGS (2)
  1. SIMVASTATIN [Suspect]
     Indication: BLOOD CHOLESTEROL INCREASED
     Dosage: 20MG 1 PER DAY
     Dates: start: 20081003, end: 20081125
  2. SIMVASTATIN [Suspect]
     Indication: BLOOD CHOLESTEROL INCREASED
     Dosage: 20MG 1 PER DAY
     Dates: start: 20081125, end: 20081125

REACTIONS (4)
  - ARTHRITIS [None]
  - JOINT SPRAIN [None]
  - RHEUMATOID ARTHRITIS [None]
  - TENDONITIS [None]
